FAERS Safety Report 5678140-9 (Version None)
Quarter: 2008Q1

REPORT INFORMATION
  Report Type: 
  Country: None (occurrence: None)
  Receive Date: 20080319
  Receipt Date: 20080310
  Transmission Date: 20080703
  Serious: Yes (Death)
  Sender: FDA-Public Use
  Company Number: 2008-00772

PATIENT
  Age: 55 Year
  Sex: Female
  Weight: 65.5 kg

DRUGS (1)
  1. VELCADE [Suspect]
     Indication: MULTIPLE MYELOMA
     Dosage: 1.30 MG/M2, INTRAVENOUS
     Route: 042
     Dates: start: 20070917, end: 20071025

REACTIONS (1)
  - ACUTE RESPIRATORY DISTRESS SYNDROME [None]
